FAERS Safety Report 8810381 (Version 8)
Quarter: 2014Q4

REPORT INFORMATION
  Report Type: Spontaneous
  Country: US (occurrence: US)
  Receive Date: 20120926
  Receipt Date: 20141229
  Transmission Date: 20150529
  Serious: Yes (Hospitalization, Other)
  Sender: FDA-Public Use
  Company Number: US-009507513-1204USA00040

PATIENT
  Sex: Female

DRUGS (7)
  1. FOSAMAX [Suspect]
     Active Substance: ALENDRONATE SODIUM
     Indication: OSTEOPENIA
  2. VITAMIN D [Concomitant]
     Active Substance: CHOLECALCIFEROL
     Dosage: UNK
     Dates: start: 1990
  3. FOSAMAX [Suspect]
     Active Substance: ALENDRONATE SODIUM
     Indication: OSTEOPOROSIS
     Dosage: 70 MG, UNK
     Route: 048
     Dates: start: 200201, end: 200812
  4. ALENDRONATE SODIUM. [Suspect]
     Active Substance: ALENDRONATE SODIUM
     Dosage: `70 MG, QW
     Route: 048
  5. FOSAMAX [Suspect]
     Active Substance: ALENDRONATE SODIUM
     Dosage: 70 MG, UNK
     Route: 048
     Dates: start: 20080227, end: 20080922
  6. TEGRETOL [Concomitant]
     Active Substance: CARBAMAZEPINE
     Indication: TRIGEMINAL NEURALGIA
     Dosage: UNK
     Dates: start: 1996
  7. VITAMINS (UNSPECIFIED) [Concomitant]
     Active Substance: VITAMINS
     Dosage: UNK
     Dates: start: 1990

REACTIONS (31)
  - Joint dislocation [Unknown]
  - Anxiety [Unknown]
  - Atrial fibrillation [Unknown]
  - Osteoarthritis [Unknown]
  - Urinary tract infection [Unknown]
  - Open reduction of fracture [Unknown]
  - Fall [Unknown]
  - Constipation [Unknown]
  - Cataract operation [Unknown]
  - Upper limb fracture [Unknown]
  - Tachycardia [Unknown]
  - Hypertension [Unknown]
  - Shoulder arthroplasty [Unknown]
  - Vomiting [Unknown]
  - Hip arthroplasty [Unknown]
  - Hip arthroplasty [Unknown]
  - Medical device removal [Unknown]
  - Fall [Unknown]
  - Limb asymmetry [Unknown]
  - Arthralgia [Unknown]
  - Open reduction of fracture [Unknown]
  - International normalised ratio increased [Unknown]
  - Diarrhoea [Unknown]
  - Irritable bowel syndrome [Unknown]
  - Femur fracture [Unknown]
  - Osteonecrosis [Unknown]
  - Leukopenia [Unknown]
  - Depression [Unknown]
  - Hip fracture [Unknown]
  - Postoperative ileus [Recovered/Resolved]
  - Nausea [Unknown]

NARRATIVE: CASE EVENT DATE: 2005
